FAERS Safety Report 12338398 (Version 2)
Quarter: 2016Q2

REPORT INFORMATION
  Report Type: Spontaneous
  Country: US (occurrence: US)
  Receive Date: 20160505
  Receipt Date: 20160525
  Transmission Date: 20160815
  Serious: No
  Sender: FDA-Public Use
  Company Number: US-MDT-ADR-2016-00812

PATIENT
  Age: 44 Year
  Sex: Male

DRUGS (1)
  1. BACLOFEN. [Suspect]
     Active Substance: BACLOFEN
     Dosage: 439.5 MCG/DAY
     Route: 037

REACTIONS (5)
  - Myelopathy [Unknown]
  - Cyst [Unknown]
  - Myelomalacia [Unknown]
  - Muscular weakness [Unknown]
  - Neuralgia [Unknown]

NARRATIVE: CASE EVENT DATE: 2015
